FAERS Safety Report 16370396 (Version 1)
Quarter: 2019Q2

REPORT INFORMATION
  Report Type: Spontaneous
  Country: US (occurrence: US)
  Receive Date: 20190423
  Receipt Date: 20190423
  Transmission Date: 20190711
  Serious: No
  Sender: FDA-Public Use
  Company Number: None

PATIENT
  Age: 62 Year
  Sex: Female

DRUGS (1)
  1. SILDENAFIL TAB 20MG [Suspect]
     Active Substance: SILDENAFIL
     Dosage: OTHER
     Route: 048
     Dates: start: 201904

REACTIONS (3)
  - Heart rate increased [None]
  - Flushing [None]
  - Eye pain [None]

NARRATIVE: CASE EVENT DATE: 20190423
